FAERS Safety Report 8363449-0 (Version None)
Quarter: 2012Q2

REPORT INFORMATION
  Report Type: 
  Country: None (occurrence: None)
  Receive Date: 20120514
  Receipt Date: 20120501
  Transmission Date: 20120825
  Serious: Yes (Disabling)
  Sender: FDA-Public Use
  Company Number: DSA_56380_2012

PATIENT
  Sex: Female

DRUGS (1)
  1. RETIN-A [Suspect]
     Indication: HEAVY EXPOSURE TO ULTRAVIOLET LIGHT
     Dosage: (DAILY TOPICAL)
     Route: 061
     Dates: start: 20110601, end: 20111101

REACTIONS (6)
  - APPLICATION SITE BURN [None]
  - HYPERHIDROSIS [None]
  - SCAR [None]
  - RASH MACULAR [None]
  - INDURATION [None]
  - DERMAL CYST [None]
